FAERS Safety Report 23043780 (Version 1)
Quarter: 2023Q4

REPORT INFORMATION
  Report Type: Spontaneous
  Country: US (occurrence: US)
  Receive Date: 20231009
  Receipt Date: 20231009
  Transmission Date: 20240109
  Serious: Yes (Congenital Anomaly, Other)
  Sender: FDA-Public Use
  Company Number: US-PURACAP-US-2023EPCLIT01453

PATIENT
  Sex: Male

DRUGS (2)
  1. DUTASTERIDE [Suspect]
     Active Substance: DUTASTERIDE
     Indication: Foetal exposure during pregnancy
     Route: 064
  2. SPIRONOLACTONE [Suspect]
     Active Substance: SPIRONOLACTONE
     Indication: Foetal exposure during pregnancy
     Route: 064

REACTIONS (3)
  - Genitalia external ambiguous [Recovered/Resolved]
  - Foetal exposure during pregnancy [Unknown]
  - Contraindicated product administered [Unknown]
